FAERS Safety Report 19898107 (Version 7)
Quarter: 2023Q1

REPORT INFORMATION
  Report Type: Report from Study
  Country: TN (occurrence: TN)
  Receive Date: 20210929
  Receipt Date: 20230310
  Transmission Date: 20230418
  Serious: Yes (Other)
  Sender: FDA-Public Use
  Company Number: TN-002147023-NVSC2021TN212606

PATIENT

DRUGS (7)
  1. RUXOLITINIB [Suspect]
     Active Substance: RUXOLITINIB
     Indication: Primary myelofibrosis
     Dosage: 20 MG/KG, BID
     Route: 048
     Dates: start: 20210715
  2. RUXOLITINIB [Suspect]
     Active Substance: RUXOLITINIB
     Dosage: 15 MG (TOOK 2 TABLETS)
     Route: 065
     Dates: start: 20211217
  3. RUXOLITINIB [Suspect]
     Active Substance: RUXOLITINIB
     Dosage: 20 MG/KG, BID
     Route: 048
     Dates: start: 20220125, end: 20220719
  4. RUXOLITINIB [Suspect]
     Active Substance: RUXOLITINIB
     Dosage: 20 MG/KG, BID
     Route: 048
     Dates: start: 20220817
  5. CUREAML [Concomitant]
     Indication: Product used for unknown indication
     Dosage: 2 DOSAGE FORM, QD
     Route: 065
     Dates: start: 20220104
  6. CUREAML [Concomitant]
     Dosage: (3 OR 4 TABLETS PER DAY)
     Route: 065
     Dates: end: 20220124
  7. UNIDEX [DEXAMETHASONE SODIUM PHOSPHATE] [Concomitant]
     Indication: Product used for unknown indication
     Dosage: 3 DOSAGE FORM, FOR 3 DAYS
     Route: 065
     Dates: start: 20220104

REACTIONS (36)
  - Bone pain [Recovered/Resolved]
  - Bronchitis [Unknown]
  - Contusion [Recovering/Resolving]
  - Nasopharyngitis [Unknown]
  - Dizziness [Unknown]
  - Oedema peripheral [Recovered/Resolved with Sequelae]
  - Vertigo [Unknown]
  - Asthenia [Unknown]
  - Pyrexia [Recovered/Resolved]
  - Gastrointestinal infection [Recovered/Resolved]
  - Haematochezia [Recovered/Resolved]
  - Haematoma [Unknown]
  - Haematoma [Recovered/Resolved]
  - White blood cell count increased [Unknown]
  - Illness [Unknown]
  - Decreased appetite [Unknown]
  - Myalgia [Recovered/Resolved]
  - Hypoaesthesia [Recovering/Resolving]
  - Pain in extremity [Not Recovered/Not Resolved]
  - Abdominal pain [Unknown]
  - Pain [Not Recovered/Not Resolved]
  - Bone pain [Recovered/Resolved]
  - Product dose omission issue [Recovered/Resolved]
  - Rectal haemorrhage [Recovered/Resolved]
  - Gait disturbance [Unknown]
  - Dyspnoea [Unknown]
  - Oropharyngeal pain [Unknown]
  - Hypoglycaemia [Unknown]
  - Back pain [Unknown]
  - Skin discolouration [Unknown]
  - Paraesthesia [Unknown]
  - Fatigue [Not Recovered/Not Resolved]
  - Fatigue [Recovered/Resolved]
  - Headache [Recovered/Resolved]
  - Vomiting [Recovered/Resolved]
  - Vomiting [Not Recovered/Not Resolved]

NARRATIVE: CASE EVENT DATE: 20210724
